FAERS Safety Report 16076241 (Version 1)
Quarter: 2019Q1

REPORT INFORMATION
  Report Type: Spontaneous
  Country: US (occurrence: US)
  Receive Date: 20190315
  Receipt Date: 20190315
  Transmission Date: 20190418
  Serious: No
  Sender: FDA-Public Use
  Company Number: US-PFIZER INC-2019109826

PATIENT
  Age: 47 Year
  Sex: Male

DRUGS (1)
  1. EUCRISA [Suspect]
     Active Substance: CRISABOROLE
     Dosage: UNK, 1X/DAY (APPLY TO AFFECTED AREAS ONCE A DAY)
     Route: 061
     Dates: start: 201902

REACTIONS (3)
  - Drug ineffective [Unknown]
  - Burning sensation [Unknown]
  - Product use issue [Unknown]
